FAERS Safety Report 21719899 (Version 1)
Quarter: 2022Q4

REPORT INFORMATION
  Report Type: Other
  Country: US (occurrence: US)
  Receive Date: 20221213
  Receipt Date: 20221213
  Transmission Date: 20230113
  Serious: Yes (Hospitalization, Other)
  Sender: FDA-Public Use
  Company Number: US-HLS-202104907

PATIENT
  Age: 56 Year
  Sex: Male
  Weight: 102 kg

DRUGS (29)
  1. CLOZAPINE [Suspect]
     Active Substance: CLOZAPINE
     Indication: Schizoaffective disorder
     Dosage: 25 MG NIGHTLY TITRATED UP TO 350 MG
     Route: 065
  2. CLOZAPINE [Suspect]
     Active Substance: CLOZAPINE
     Indication: Schizoaffective disorder
     Dosage: 50-100 MG PER DAY
     Route: 065
  3. LISINOPRIL [Concomitant]
     Active Substance: LISINOPRIL
     Dosage: 10 MG BY MOUTH DAILY
     Route: 065
  4. METFORMIN [Concomitant]
     Active Substance: METFORMIN HYDROCHLORIDE
     Dosage: UNKNOWN
     Route: 065
  5. LAMOTRIGINE [Concomitant]
     Active Substance: LAMOTRIGINE
     Dosage: UNKNOWN
     Route: 065
  6. MIRTAZAPINE [Concomitant]
     Active Substance: MIRTAZAPINE
     Dosage: UNKNOWN
     Route: 065
  7. VENLAFAXINE [Concomitant]
     Active Substance: VENLAFAXINE HYDROCHLORIDE
     Dosage: UNKNOWN
     Route: 065
  8. ONDANSETRON [Concomitant]
     Active Substance: ONDANSETRON
     Dosage: 8 MG BY MOUTH EVERY 12 HOURS
     Route: 065
  9. ASPIRIN [Concomitant]
     Active Substance: ASPIRIN
     Dosage: 81 MG BY MOUTH DAILY
     Route: 065
  10. ATORVASTATIN [Concomitant]
     Active Substance: ATORVASTATIN
     Dosage: 80 MG BY MOUTH WITH DINNER
     Route: 065
  11. ERGOCALCIFEROL [Concomitant]
     Active Substance: ERGOCALCIFEROL
     Dosage: 50,000 UNITS BY MOUTH WEEKLY
     Route: 065
  12. FAMOTIDINE [Concomitant]
     Active Substance: FAMOTIDINE
     Dosage: 20 MG BY MOUTH TWICE DAILY
     Route: 065
  13. FENOFIBRATE [Concomitant]
     Active Substance: FENOFIBRATE
     Dosage: 160 MG BY MOUTH DAILY
     Route: 065
  14. FLUTICASONE PROPIONATE [Concomitant]
     Active Substance: FLUTICASONE PROPIONATE
     Dosage: 50 MCG INTRANASALLY IN EACH NOSE DAILY
     Route: 065
  15. POLYETHYLENE GLYCOL [Concomitant]
     Active Substance: POLYETHYLENE GLYCOL
     Dosage: 17 MG BY MOUTH DAILY
     Route: 065
  16. Senna-docusate 8.6e50 mg [Concomitant]
     Dosage: 1 TABLET BY MOUTH TWICE DAILY
     Route: 065
  17. TAMSULOSIN [Concomitant]
     Active Substance: TAMSULOSIN
     Dosage: 0.8 MG BY MOUTH NIGHTLY
     Route: 065
  18. DESMOPRESSIN [Concomitant]
     Active Substance: DESMOPRESSIN
     Dosage: UNKNOWN
     Route: 065
  19. GLYCOPYRROLATE [Concomitant]
     Active Substance: GLYCOPYRROLATE
     Dosage: UNKNOWN
     Route: 065
  20. LORAZEPAM [Concomitant]
     Active Substance: LORAZEPAM
     Indication: Agitation
     Dosage: 2 MG BY MOUTH TWICE DAILY, DECREASED TO 1 MG TWICE DAILY TO 1 MG NIGHTLY, THEN DISCONTINUED
     Route: 065
  21. PROPRANOLOL [Concomitant]
     Active Substance: PROPRANOLOL HYDROCHLORIDE
     Dosage: 10 MG BY MOUTH TWICE DAILY, INCREASED TO 15 MG?TWICE DAILY TO 20 MG TWICE DAILY
     Route: 065
  22. ACETAMINOPHEN [Concomitant]
     Active Substance: ACETAMINOPHEN
     Dosage: 650 MG BY MOUTH EVERY 6 HOURS PRN
     Route: 065
  23. Magnesium hydroxide 400 mg/5mL suspension [Concomitant]
     Dosage: 30 ML BY MOUTH DAILY PRN CONSTIPATION
     Route: 065
  24. MELATONIN [Concomitant]
     Active Substance: MELATONIN
     Indication: Insomnia
     Dosage: 6 MG BY MOUTH NIGHTLY PRN
     Route: 065
  25. ONDANSETRON [Concomitant]
     Active Substance: ONDANSETRON
     Indication: Nausea
     Dosage: 4 MG BY MOUTH EVERY 6 HOURS PRN
     Route: 065
  26. ONDANSETRON [Concomitant]
     Active Substance: ONDANSETRON
     Indication: Vomiting
     Dosage: 4 MG BY MOUTH EVERY 6 HOURS PRN
     Route: 065
  27. SIMETHICONE (DIMETHICONE) [Concomitant]
     Active Substance: DIMETHICONE
     Indication: Flatulence
     Dosage: 80 MG BY MOUTH EVERY 6 HOURS PRN
     Route: 065
  28. ALBUTEROL [Concomitant]
     Active Substance: ALBUTEROL
     Indication: Dyspnoea
     Dosage: 2 PUFFS EVERY 6 HOURS PRN
     Route: 065
  29. CYCLOBENZAPRINE [Concomitant]
     Active Substance: CYCLOBENZAPRINE
     Indication: Muscle spasms
     Dosage: UNKNOWN
     Route: 065

REACTIONS (14)
  - Intestinal obstruction [Unknown]
  - Chest pain [Unknown]
  - Confusional state [Unknown]
  - Dyspnoea [Unknown]
  - Enuresis [Unknown]
  - Lethargy [Unknown]
  - Oxygen saturation decreased [Unknown]
  - Pulmonary embolism [Unknown]
  - Oedema [Unknown]
  - Schizoaffective disorder [Unknown]
  - Salivary hypersecretion [Unknown]
  - Tachycardia [Unknown]
  - Tardive dyskinesia [Unknown]
  - Asthenia [Unknown]
